FAERS Safety Report 16607831 (Version 2)
Quarter: 2019Q3

REPORT INFORMATION
  Report Type: Spontaneous
  Country: CA (occurrence: CA)
  Receive Date: 20190722
  Receipt Date: 20190920
  Transmission Date: 20191004
  Serious: Yes (Other)
  Sender: FDA-Public Use
  Company Number: CA-AUROBINDO-AUR-APL-2019-009964

PATIENT
  Age: 68 Year
  Sex: Female

DRUGS (8)
  1. CANDESARTAN. [Suspect]
     Active Substance: CANDESARTAN
     Indication: CARDIAC FAILURE CHRONIC
     Dosage: 16 MILLIGRAM, ONCE A DAY
     Route: 065
  2. FUROSEMIDE. [Suspect]
     Active Substance: FUROSEMIDE
     Indication: CARDIAC FAILURE CHRONIC
     Dosage: 40 MILLIGRAM, ONCE A DAY
     Route: 065
  3. NITRO-DUR [Suspect]
     Active Substance: NITROGLYCERIN
     Indication: CARDIAC FAILURE CHRONIC
     Dosage: 0.4 MILLIGRAM, ONCE A DAY
     Route: 065
  4. NITROGLYCERIN. [Suspect]
     Active Substance: NITROGLYCERIN
     Indication: CARDIAC FAILURE
     Dosage: 0.4 MILLIGRAM, EVERY HOUR
     Route: 065
  5. BISOPROLOL FUMARATE. [Suspect]
     Active Substance: BISOPROLOL FUMARATE
     Dosage: 5 MILLIGRAM, ONCE A DAY
     Route: 065
  6. PERINDOPRIL [Suspect]
     Active Substance: PERINDOPRIL
     Indication: CARDIAC FAILURE CHRONIC
     Dosage: 4 MILLIGRAM, ONCE A DAY
     Route: 065
  7. BISOPROLOL FUMARATE. [Suspect]
     Active Substance: BISOPROLOL FUMARATE
     Indication: CARDIAC FAILURE CHRONIC
     Dosage: 10 MILLIGRAM, ONCE A DAY
     Route: 065
  8. SPIRONOLACTONE. [Suspect]
     Active Substance: SPIRONOLACTONE
     Indication: CARDIAC FAILURE CHRONIC
     Dosage: 25 MILLIGRAM, ONCE A DAY
     Route: 065

REACTIONS (4)
  - Dyspnoea [Recovered/Resolved]
  - Cardiac failure [Unknown]
  - Cough [Recovered/Resolved]
  - Drug ineffective [Recovered/Resolved]
